FAERS Safety Report 7421170-7 (Version None)
Quarter: 2011Q2

REPORT INFORMATION
  Report Type: 
  Country: None (occurrence: None)
  Receive Date: 20110418
  Receipt Date: 20110412
  Transmission Date: 20111010
  Serious: No
  Sender: FDA-Public Use
  Company Number: US-PFIZER INC-2011081225

PATIENT
  Sex: Male

DRUGS (2)
  1. NORCO [Concomitant]
     Indication: PAIN
     Dosage: 5/325 MG, EVERY 4 HOURS AS NEEDED
     Route: 048
  2. NICOTROL [Suspect]
     Indication: EX-TOBACCO USER
     Dosage: 4/10 ML, 1 TO 2 SPRAYS PER HOUR
     Route: 045
     Dates: start: 20110406

REACTIONS (1)
  - DRUG INEFFECTIVE [None]
